FAERS Safety Report 4938488-X (Version None)
Quarter: 2006Q1

REPORT INFORMATION
  Report Type: 
  Country: None (occurrence: None)
  Receive Date: 20060306
  Receipt Date: 20060220
  Transmission Date: 20060701
  Serious: Yes (Hospitalization, Other)
  Sender: FDA-Public Use
  Company Number: US200602003806

PATIENT
  Age: 70 Year
  Sex: Male
  Weight: 102.9 kg

DRUGS (8)
  1. PROZAC [Suspect]
     Indication: DEPRESSION
     Dosage: ORAL
     Route: 048
     Dates: start: 19850101, end: 20051205
  2. AMBIEN [Concomitant]
  3. LITHIUM (LITHIUM) [Concomitant]
  4. TERAZOSIN (TERAZOSIN) [Concomitant]
  5. MICARDIS [Concomitant]
  6. DICLOFENAC POTASSIUM [Concomitant]
  7. NORVASC      /DEN/  (AMLODIPINE BESILATE) TABLET [Concomitant]
  8. DARVOCET-N 100 [Concomitant]

REACTIONS (4)
  - CARDIO-RESPIRATORY ARREST [None]
  - COMA [None]
  - DRUG TOXICITY [None]
  - FALL [None]
